FAERS Safety Report 5234797-8 (Version None)
Quarter: 2007Q1

REPORT INFORMATION
  Report Type: 
  Country: None (occurrence: None)
  Receive Date: 20070209
  Receipt Date: 20070130
  Transmission Date: 20070707
  Serious: Yes (Other)
  Sender: FDA-Public Use
  Company Number: JP-PFIZER INC-2006149615

PATIENT
  Sex: Male

DRUGS (9)
  1. DETRUSITOL LA [Suspect]
     Indication: HYPERTONIC BLADDER
     Route: 048
  2. VOLTAREN [Suspect]
     Indication: CANCER PAIN
     Route: 048
     Dates: start: 20061124, end: 20061201
  3. AVISHOT [Concomitant]
     Route: 048
  4. SELBEX [Concomitant]
     Route: 048
     Dates: start: 20061124, end: 20061207
  5. ADONA [Concomitant]
     Route: 048
  6. TRANSAMIN [Concomitant]
     Route: 048
  7. HALCION [Concomitant]
     Route: 048
  8. MEIACT [Concomitant]
     Route: 048
     Dates: start: 20061124, end: 20061207
  9. NIZORAL [Concomitant]
     Route: 062

REACTIONS (5)
  - ALANINE AMINOTRANSFERASE INCREASED [None]
  - ASPARTATE AMINOTRANSFERASE INCREASED [None]
  - BLOOD ALKALINE PHOSPHATASE INCREASED [None]
  - HEPATIC FUNCTION ABNORMAL [None]
  - LIVER DISORDER [None]
